FAERS Safety Report 5960359-0 (Version None)
Quarter: 2008Q4

REPORT INFORMATION
  Report Type: 
  Country: None (occurrence: None)
  Receive Date: 20081118
  Receipt Date: 20081102
  Transmission Date: 20090506
  Serious: Yes (Hospitalization)
  Sender: FDA-Public Use
  Company Number: ENT 2008-0179

PATIENT
  Age: 54 Year
  Sex: Male

DRUGS (4)
  1. COMTAN (ENTCAPONE) [Suspect]
     Indication: EXTRAPYRAMIDAL DISORDER
     Dosage: 1600 MG ORAL
     Route: 048
     Dates: start: 20040101, end: 20080919
  2. MANTADIX [Suspect]
     Indication: EXTRAPYRAMIDAL DISORDER
     Dosage: 800 MG ORAL
     Route: 048
     Dates: start: 20040101, end: 20080927
  3. ATENOLOL [Suspect]
     Indication: HYPERTENSION
     Dosage: 100 MG (50 MG, 2 IN 1 D) ORAL
     Route: 048
     Dates: start: 20030101
  4. PLAVIX [Suspect]
     Dosage: 75 MG (75 MG, 1 IN 1 D) ORAL
     Route: 048
     Dates: start: 20040101, end: 20080927

REACTIONS (3)
  - CONDITION AGGRAVATED [None]
  - NERVOUS SYSTEM DISORDER [None]
  - VASCULITIS [None]
